FAERS Safety Report 22645546 (Version 1)
Quarter: 2023Q2

REPORT INFORMATION
  Report Type: Spontaneous
  Country: CN (occurrence: CN)
  Receive Date: 20230627
  Receipt Date: 20230627
  Transmission Date: 20230722
  Serious: Yes (Other)
  Sender: FDA-Public Use
  Company Number: CN-SUN PHARMACEUTICAL INDUSTRIES LTD-2023R1-396442

PATIENT
  Age: 35 Year
  Sex: Female

DRUGS (1)
  1. IBUPROFEN [Suspect]
     Active Substance: IBUPROFEN
     Indication: Product used for unknown indication
     Dosage: UNK
     Route: 065

REACTIONS (7)
  - Intentional product misuse [Unknown]
  - Gastric ulcer [Recovered/Resolved]
  - Duodenitis [Recovered/Resolved]
  - Chronic gastritis [Recovered/Resolved]
  - Helicobacter infection [Recovered/Resolved]
  - Depression [Recovered/Resolved]
  - Cognitive disorder [Recovered/Resolved]
